FAERS Safety Report 19754470 (Version 1)
Quarter: 2021Q3

REPORT INFORMATION
  Report Type: Spontaneous
  Country: US (occurrence: US)
  Receive Date: 20210825
  Receipt Date: 20210825
  Transmission Date: 20211014
  Serious: Yes (Hospitalization)
  Sender: FDA-Public Use
  Company Number: None

PATIENT
  Sex: Male
  Weight: 13.2 kg

DRUGS (4)
  1. MELPHALAN. [Suspect]
     Active Substance: MELPHALAN
     Dates: end: 20210610
  2. CISPLATIN. [Suspect]
     Active Substance: CISPLATIN
     Dates: end: 20210611
  3. G?CSF (FILGRASTIM, AMGEN) [Suspect]
     Active Substance: FILGRASTIM
     Dates: end: 20210615
  4. ETOPOSIDE (VP?16) [Suspect]
     Active Substance: ETOPOSIDE
     Dates: end: 20210611

REACTIONS (6)
  - Tachypnoea [None]
  - Vomiting [None]
  - Hypoxia [None]
  - Respiratory distress [None]
  - Pulmonary oedema [None]
  - Pneumonitis [None]

NARRATIVE: CASE EVENT DATE: 20210818
